FAERS Safety Report 7099285-5 (Version None)
Quarter: 2010Q4

REPORT INFORMATION
  Report Type: 
  Country: None (occurrence: None)
  Receive Date: 20101105
  Receipt Date: 20101020
  Transmission Date: 20110411
  Serious: Yes (Hospitalization)
  Sender: FDA-Public Use
  Company Number: 2009002433

PATIENT
  Age: 61 Year
  Sex: Male
  Weight: 55 kg

DRUGS (6)
  1. ERLOTINIB (ERLOTINIB HCL) (TABLET) (ERLOTINIB HCL) [Suspect]
     Indication: NON-SMALL CELL LUNG CANCER
     Dosage: (150 MG, QD), ORAL
     Route: 048
     Dates: start: 20090414, end: 20090616
  2. CP-751, 871 [Suspect]
     Indication: NON-SMALL CELL LUNG CANCER
     Dosage: (1100 MG, DAY 1 AND 2 EVERY 3 WEEKS), INTRAVENOUS
     Route: 042
     Dates: start: 20090414, end: 20090616
  3. CARBOPLATIN [Concomitant]
  4. GEMZAR [Concomitant]
  5. ISOPTIN [Concomitant]
  6. TIOTROPIUM BROMIDE [Concomitant]

REACTIONS (2)
  - ACQUIRED TRACHEO-OESOPHAGEAL FISTULA [None]
  - MALIGNANT NEOPLASM PROGRESSION [None]
